FAERS Safety Report 6130375-7 (Version None)
Quarter: 2009Q1

REPORT INFORMATION
  Report Type: 
  Country: None (occurrence: None)
  Receive Date: 20090324
  Receipt Date: 20090319
  Transmission Date: 20090719
  Serious: No
  Sender: FDA-Public Use
  Company Number: US-B.I. PHARMACEUTICALS,INC./RIDGEFIELD-2009-BP-01751BP

PATIENT
  Sex: Male

DRUGS (12)
  1. MIRAPEX [Suspect]
     Indication: PARKINSON'S DISEASE
     Dates: start: 20070426
  2. RANITIDINE [Concomitant]
     Dosage: 150MG
  3. CARBIDOPA AND LEVODOPA [Concomitant]
  4. UROXATRAL [Concomitant]
     Dosage: 10MG
  5. SIMVASTATIN [Concomitant]
     Dosage: 40MG
  6. NIACIN [Concomitant]
  7. BIOTIN [Concomitant]
  8. ASPIRIN [Concomitant]
  9. LUTEIN [Concomitant]
  10. MELOXICAM [Concomitant]
  11. TRAVATAN [Concomitant]
  12. ENABLEX [Concomitant]

REACTIONS (2)
  - DIPLOPIA [None]
  - VISUAL IMPAIRMENT [None]
